FAERS Safety Report 5079032-9 (Version None)
Quarter: 2006Q3

REPORT INFORMATION
  Report Type: 
  Country: None (occurrence: None)
  Receive Date: 20060814
  Receipt Date: 20060803
  Transmission Date: 20061208
  Serious: Yes (Other)
  Sender: FDA-Public Use
  Company Number: US-BRISTOL-MYERS SQUIBB COMPANY-13464615

PATIENT
  Sex: Female

DRUGS (3)
  1. COUMADIN [Suspect]
  2. DIGITEK [Suspect]
  3. HYCAMTIN [Suspect]
     Dosage: THERAPY DURATION: 1 YEAR, INTERRUPTED DUE TO EVENT
     Route: 042
     Dates: start: 20050101

REACTIONS (1)
  - THROMBOCYTOPENIA [None]
